FAERS Safety Report 4962709-0 (Version None)
Quarter: 2006Q2

REPORT INFORMATION
  Report Type: 
  Country: None (occurrence: None)
  Receive Date: 20060404
  Receipt Date: 20051019
  Transmission Date: 20061013
  Serious: Yes (Hospitalization)
  Sender: FDA-Public Use
  Company Number: US-MERCK-0510USA08100

PATIENT
  Age: 65 Year
  Sex: Female
  Weight: 75 kg

DRUGS (12)
  1. PLAVIX [Concomitant]
     Route: 048
  2. NITROSTAT [Concomitant]
     Route: 060
  3. IMDUR [Concomitant]
     Route: 048
  4. VIOXX [Suspect]
     Indication: ARTHRITIS
     Route: 048
     Dates: start: 20020501, end: 20040526
  5. VERAPAMIL MSD LP [Concomitant]
     Route: 048
  6. ASPIRIN [Concomitant]
     Route: 048
  7. DYAZIDE [Concomitant]
     Indication: HYPERTENSION
     Route: 065
  8. DYAZIDE [Concomitant]
     Indication: DEHYDRATION
     Route: 065
  9. COUMADIN [Concomitant]
     Indication: ARTERIOSCLEROSIS
     Route: 065
     Dates: start: 20031027
  10. COUMADIN [Concomitant]
     Indication: ANTICOAGULANT THERAPY
     Route: 065
     Dates: start: 20031027
  11. COREG [Concomitant]
     Route: 048
  12. ZYRTEC [Concomitant]
     Route: 048

REACTIONS (8)
  - ANGINA PECTORIS [None]
  - ATRIAL FIBRILLATION [None]
  - ATRIAL FLUTTER [None]
  - CARDIAC MURMUR [None]
  - CORONARY ARTERY DISEASE [None]
  - CORONARY ARTERY STENOSIS [None]
  - EXTRASYSTOLES [None]
  - SUPRAVENTRICULAR TACHYCARDIA [None]
